FAERS Safety Report 7653281-5 (Version None)
Quarter: 2011Q3

REPORT INFORMATION
  Report Type: 
  Country: None (occurrence: None)
  Receive Date: 20110803
  Receipt Date: 20110725
  Transmission Date: 20111222
  Serious: Yes (Other)
  Sender: FDA-Public Use
  Company Number: IT-MPIJNJ-2011-03180

PATIENT

DRUGS (1)
  1. VELCADE [Suspect]
     Indication: MULTIPLE MYELOMA
     Dosage: 1.3 UNK, UNK
     Route: 042
     Dates: start: 20100409, end: 20100914

REACTIONS (1)
  - NEUROTOXICITY [None]
